FAERS Safety Report 8202838-1 (Version None)
Quarter: 2012Q1

REPORT INFORMATION
  Report Type: 
  Country: None (occurrence: None)
  Receive Date: 20120312
  Receipt Date: 20120312
  Transmission Date: 20120608
  Serious: Yes (Other)
  Sender: FDA-Public Use
  Company Number: None

PATIENT
  Sex: Female
  Weight: 86.182 kg

DRUGS (2)
  1. DOXYCYCLINE [Suspect]
     Indication: BRONCHITIS
     Dosage: 100.0 MG
     Route: 048
     Dates: start: 20091120, end: 20091120
  2. DOXYCYCLINE [Concomitant]
     Dosage: 100MG
     Route: 048
     Dates: start: 20091120, end: 20091120

REACTIONS (1)
  - URTICARIA [None]
